FAERS Safety Report 23564769 (Version 3)
Quarter: 2024Q1

REPORT INFORMATION
  Report Type: Spontaneous
  Country: GR (occurrence: GR)
  Receive Date: 20240226
  Receipt Date: 20240325
  Transmission Date: 20240409
  Serious: No
  Sender: FDA-Public Use
  Company Number: GR-PFIZER INC-PV202400017685

PATIENT
  Age: 10 Year
  Sex: Female

DRUGS (1)
  1. GENOTROPIN [Suspect]
     Active Substance: SOMATROPIN
     Indication: Growth hormone deficiency
     Dosage: 0.8 X 4X/WEEK, 0.9 X 2X/WEEK AND 1 DAY-OFF
     Route: 058
     Dates: start: 202401

REACTIONS (2)
  - Device leakage [Unknown]
  - Drug dose omission by device [Unknown]
